FAERS Safety Report 9543837 (Version 5)
Quarter: 2014Q3

REPORT INFORMATION
  Report Type: Spontaneous
  Country: CA (occurrence: CA)
  Receive Date: 20130923
  Receipt Date: 20140819
  Transmission Date: 20150326
  Serious: Yes (Hospitalization)
  Sender: FDA-Public Use
  Company Number: CA-GLAXOSMITHKLINE-A1041658A

PATIENT
  Age: 50 Year
  Sex: Male
  Weight: 59.1 kg

DRUGS (8)
  1. SPIRIVA [Concomitant]
     Active Substance: TIOTROPIUM BROMIDE MONOHYDRATE
  2. ADVAIR HFA [Suspect]
     Active Substance: FLUTICASONE PROPIONATE\SALMETEROL XINAFOATE
     Indication: CHRONIC OBSTRUCTIVE PULMONARY DISEASE
     Dosage: 1PUFF TWICE PER DAY
     Route: 055
     Dates: start: 2011
  3. VENTOLIN [Suspect]
     Active Substance: ALBUTEROL SULFATE
     Indication: PRODUCT USED FOR UNKNOWN INDICATION
     Route: 065
  4. ATROVENT [Suspect]
     Active Substance: IPRATROPIUM BROMIDE
     Indication: PRODUCT USED FOR UNKNOWN INDICATION
     Route: 065
  5. MULTI VITAMINS [Concomitant]
  6. VITAMIN B [Concomitant]
     Active Substance: VITAMIN B
  7. OXYGEN. [Concomitant]
     Active Substance: OXYGEN
  8. VENTOLIN [Concomitant]
     Active Substance: ALBUTEROL SULFATE
     Dosage: 1PUFF FOUR TIMES PER DAY

REACTIONS (17)
  - Lung disorder [Recovering/Resolving]
  - Pulmonary pain [Unknown]
  - Bacterial infection [Unknown]
  - Cough [Recovered/Resolved]
  - Viral infection [Recovering/Resolving]
  - Arm amputation [Unknown]
  - Heart rate increased [Unknown]
  - Endotracheal intubation [Unknown]
  - Dyspnoea [Recovering/Resolving]
  - Palpitations [Recovering/Resolving]
  - Aspiration [Not Recovered/Not Resolved]
  - Oxygen saturation decreased [Unknown]
  - Dysphonia [Recovering/Resolving]
  - Weight decreased [Unknown]
  - Chronic obstructive pulmonary disease [Unknown]
  - Tremor [Unknown]
  - Leg amputation [Unknown]

NARRATIVE: CASE EVENT DATE: 20130930
